FAERS Safety Report 9359295 (Version 1)
Quarter: 2013Q2

REPORT INFORMATION
  Report Type: Spontaneous
  Country: US (occurrence: US)
  Receive Date: 20130620
  Receipt Date: 20130620
  Transmission Date: 20140414
  Serious: Yes (Other)
  Sender: FDA-Public Use
  Company Number: CHPA2013US010042

PATIENT
  Age: 69 Year
  Sex: Female

DRUGS (3)
  1. MAALOX ANTACID/ANTIGAS MAX LIQ [Suspect]
     Indication: ABDOMINAL PAIN UPPER
     Dosage: UNK, UNK
     Route: 048
  2. LISINOPRIL [Concomitant]
     Dosage: UNK, UNK
  3. CARDIOVEL [Concomitant]
     Dosage: UNK, UNK

REACTIONS (3)
  - Diabetes mellitus [Not Recovered/Not Resolved]
  - Urinary tract infection [Recovered/Resolved]
  - Dyspepsia [Recovered/Resolved with Sequelae]
